FAERS Safety Report 5669719-9 (Version None)
Quarter: 2008Q1

REPORT INFORMATION
  Report Type: 
  Country: None (occurrence: None)
  Receive Date: 20080313
  Receipt Date: 20080313
  Transmission Date: 20080703
  Serious: Yes (Other)
  Sender: FDA-Public Use
  Company Number: None

PATIENT
  Age: 13 Year
  Sex: Female
  Weight: 52.1637 kg

DRUGS (1)
  1. BOTULINUM TOXIN A [Suspect]

REACTIONS (7)
  - CHOKING [None]
  - CONDITION AGGRAVATED [None]
  - DYSPHAGIA [None]
  - HYPOREFLEXIA [None]
  - MOTOR DYSFUNCTION [None]
  - ORAL DISORDER [None]
  - SALIVARY HYPERSECRETION [None]
